FAERS Safety Report 9053487 (Version 3)
Quarter: 2013Q1

REPORT INFORMATION
  Report Type: Report from Study
  Country: US (occurrence: US)
  Receive Date: 20130208
  Receipt Date: 20130313
  Transmission Date: 20140127
  Serious: Yes (Hospitalization, Other)
  Sender: FDA-Public Use
  Company Number: US-JNJFOC-20130200626

PATIENT
  Age: 12 None
  Sex: Male
  Weight: 58.7 kg

DRUGS (9)
  1. INFLIXIMAB, RECOMBINANT [Suspect]
     Indication: CROHN^S DISEASE
     Route: 042
     Dates: start: 20130116
  2. INFLIXIMAB, RECOMBINANT [Suspect]
     Indication: CROHN^S DISEASE
     Route: 042
     Dates: start: 20110112
  3. HYDROCORTISONE [Concomitant]
  4. OMEPRAZOLE [Concomitant]
  5. PIMECROLIMUS [Concomitant]
  6. FLUTICASONE [Concomitant]
  7. LORATADINE [Concomitant]
  8. MULTIVITAMINS [Concomitant]
  9. VITAMIN D [Concomitant]

REACTIONS (1)
  - Crohn^s disease [Recovered/Resolved]
